FAERS Safety Report 9891085 (Version 1)
Quarter: 2014Q1

REPORT INFORMATION
  Report Type: Spontaneous
  Country: US (occurrence: None)
  Receive Date: 20140211
  Receipt Date: 20140211
  Transmission Date: 20141002
  Serious: No
  Sender: FDA-Public Use
  Company Number: None

PATIENT
  Age: 50 Year
  Sex: Female
  Weight: 77.11 kg

DRUGS (1)
  1. CEFUROXIME [Suspect]
     Indication: EAR INFECTION
     Route: 055
     Dates: start: 20140123, end: 20140124

REACTIONS (1)
  - Back pain [None]
